FAERS Safety Report 8608696 (Version 5)
Quarter: 2012Q4

REPORT INFORMATION
  Report Type: 
  Country: US (occurrence: US)
  Receive Date: 20120611
  Receipt Date: 20121126
  Transmission Date: 20130627
  Serious: Yes (Hospitalization, Disabling, Other)
  Sender: FDA-Public Use
  Company Number: US-009507513-1206USA00878

PATIENT

DRUGS (32)
  1. FOSAMAX [Suspect]
     Indication: OSTEOPOROSIS
     Dosage: 70 mg, qw
     Route: 048
     Dates: start: 20040513, end: 201012
  2. ALENDRONATE SODIUM [Suspect]
     Indication: OSTEOPOROSIS
     Dosage: 70 mg, UNK
     Route: 048
     Dates: start: 20080224
  3. CORTICOSTEROIDS (UNSPECIFIED) [Concomitant]
     Dosage: UNK
     Dates: start: 20010604, end: 20110505
  4. REMICADE [Concomitant]
     Indication: RHEUMATOID ARTHRITIS
     Dosage: q 8 wks
     Dates: end: 200909
  5. ARAVA [Concomitant]
     Indication: RHEUMATOID ARTHRITIS
     Dosage: 2.5 mg, qid
  6. EXFORGE [Concomitant]
     Indication: HYPERTENSION
     Dosage: 5 mg, UNK
     Dates: end: 20120518
  7. METHOTREXATE [Concomitant]
     Indication: RHEUMATOID ARTHRITIS
     Dosage: 2.5 mg, 4-5 tabs wk
     Dates: start: 1990
  8. HYDROXYCHLOROQUINE SULFATE [Concomitant]
     Indication: RHEUMATOID ARTHRITIS
     Dosage: 4 tabs wk
  9. LORTAB [Concomitant]
     Indication: RHEUMATOID ARTHRITIS
     Dosage: 7.5/750 q6 prn
  10. LORTAB [Concomitant]
     Indication: ARTHRALGIA
  11. MICARDIS [Concomitant]
     Indication: ESSENTIAL HYPERTENSION
     Dosage: 40 mg, UNK
  12. FUROSEMIDE [Concomitant]
     Indication: ESSENTIAL HYPERTENSION
  13. CLONIDINE [Concomitant]
     Indication: ESSENTIAL HYPERTENSION
  14. TARKA [Concomitant]
     Indication: ESSENTIAL HYPERTENSION
     Dosage: 2/180 qd
  15. CALCIUM D (CALCIUM CARBONATE (+) CHOLECALCIFEROL) [Concomitant]
     Indication: OSTEOPOROSIS
     Dosage: 600 mg, qd
  16. CYMBALTA [Concomitant]
     Indication: DEPRESSION
     Dosage: 30 mg, qd
  17. ALLERGENIC EXTRACT [Concomitant]
     Indication: RHINITIS ALLERGIC
     Dosage: qw
     Route: 058
  18. FLONASE [Concomitant]
     Indication: RHINITIS ALLERGIC
     Dosage: 2 sprays each nostril qd
  19. EPIPEN [Concomitant]
     Indication: RHINITIS ALLERGIC
     Dosage: rarely
  20. LIPITOR [Concomitant]
     Indication: HYPERCHOLESTEROLAEMIA
  21. ZETIA [Concomitant]
     Indication: HYPERCHOLESTEROLAEMIA
     Dosage: 10 mg, qd
  22. MIRAPEX [Concomitant]
  23. ORENCIA [Concomitant]
     Indication: RHEUMATOID ARTHRITIS
     Dosage: q mo
  24. FOLIC ACID [Concomitant]
     Indication: RHEUMATOID ARTHRITIS
     Dosage: 400 mg, tid
  25. VOLTAREN EMULGEL [Concomitant]
     Indication: RHEUMATOID ARTHRITIS
     Dosage: qid prn
  26. VITAMIN D (UNSPECIFIED) [Concomitant]
     Indication: OSTEOPOROSIS
     Dosage: 50000 IU wk
  27. HYDROXYCHLOROQUINE SULFATE [Concomitant]
     Indication: RHEUMATOID ARTHRITIS
     Dosage: 200 mg, UNK
  28. HYDROCODONE/APAP [Concomitant]
     Indication: RHEUMATOID ARTHRITIS
     Dosage: 7.5/750 q6h
  29. HYDROCODONE/APAP [Concomitant]
     Indication: PAIN
  30. TOPROL XL TABLETS [Concomitant]
     Indication: HYPERTENSION
     Dosage: 100 mg, qd
  31. METOPROLOL [Concomitant]
     Indication: ESSENTIAL HYPERTENSION
  32. CLONIDINE HYDROCHLORIDE [Concomitant]
     Indication: ESSENTIAL HYPERTENSION
     Dosage: 2 tabs qd

REACTIONS (106)
  - Femur fracture [Not Recovered/Not Resolved]
  - Hip fracture [Unknown]
  - Intramedullary rod insertion [Unknown]
  - Open reduction of fracture [Unknown]
  - Thrombocytopenia [Recovering/Resolving]
  - Renal artery stent placement [Unknown]
  - Anaemia [Unknown]
  - Skin cancer [Unknown]
  - Limb asymmetry [Unknown]
  - Vitamin D deficiency [Unknown]
  - Type 2 diabetes mellitus [Unknown]
  - Sinus tachycardia [Recovering/Resolving]
  - Joint effusion [Unknown]
  - Osteoarthritis [Unknown]
  - Calculus ureteric [Unknown]
  - Blood pressure increased [Unknown]
  - Chest pain [Not Recovered/Not Resolved]
  - Dyspnoea [Not Recovered/Not Resolved]
  - Renal colic [Unknown]
  - Hydronephrosis [Unknown]
  - Lithotripsy [Unknown]
  - Cystoscopy [Unknown]
  - Gastric disorder [Unknown]
  - Osteopenia [Unknown]
  - Wisdom teeth removal [Unknown]
  - Bone infarction [Unknown]
  - Nephrolithiasis [Unknown]
  - Diverticulum [Unknown]
  - Smear cervix abnormal [Unknown]
  - Cervical dysplasia [Unknown]
  - Cyst [Unknown]
  - Insomnia [Unknown]
  - Urinary tract infection [Recovered/Resolved]
  - Dysuria [Recovered/Resolved]
  - Osteoarthritis [Unknown]
  - Restless legs syndrome [Unknown]
  - Cellulitis [Recovered/Resolved]
  - Skin bacterial infection [Recovered/Resolved]
  - Nasal discomfort [Recovered/Resolved]
  - Wound infection staphylococcal [Recovered/Resolved]
  - Nasal ulcer [Recovered/Resolved]
  - Accident at work [Unknown]
  - Myelopathy [Unknown]
  - Exostosis [Unknown]
  - Fibrosis [Unknown]
  - Intervertebral disc protrusion [Unknown]
  - Gallbladder disorder [Unknown]
  - Renal disorder [Unknown]
  - Spinal disorder [Unknown]
  - Diabetic nephropathy [Unknown]
  - Nephrosclerosis [Unknown]
  - Syncope [Unknown]
  - Hypotension [Unknown]
  - Hot flush [Unknown]
  - Myelopathy [Unknown]
  - Tachycardia [Unknown]
  - Hypovitaminosis [Unknown]
  - Chronic fatigue syndrome [Not Recovered/Not Resolved]
  - Hereditary haemochromatosis [Unknown]
  - Drug intolerance [Unknown]
  - Ureteric dilatation [Unknown]
  - Muscle strain [Unknown]
  - Muscle strain [Unknown]
  - Periodic limb movement disorder [Unknown]
  - Abdominal adhesions [Unknown]
  - Pollakiuria [Unknown]
  - Pain [Unknown]
  - Blood pressure inadequately controlled [Unknown]
  - Pain [Unknown]
  - Ureteric obstruction [Unknown]
  - Nasal inflammation [Unknown]
  - Skin irritation [Unknown]
  - Spinal disorder [Unknown]
  - Migraine [Unknown]
  - Musculoskeletal pain [Unknown]
  - Gastrooesophageal reflux disease [Unknown]
  - Vomiting [Unknown]
  - Abdominal distension [Unknown]
  - Erythema [Unknown]
  - Dizziness [Unknown]
  - Abdominal discomfort [Unknown]
  - Dizziness [Unknown]
  - Dysphagia [Unknown]
  - Constipation [Unknown]
  - Constipation [Unknown]
  - Fall [Unknown]
  - Back pain [Not Recovered/Not Resolved]
  - Abdominal pain [Unknown]
  - Malaise [Unknown]
  - Nausea [Unknown]
  - Oedema peripheral [Unknown]
  - Arthralgia [Unknown]
  - Muscle spasms [Unknown]
  - Muscle spasms [Unknown]
  - Headache [Unknown]
  - Asthenia [Unknown]
  - Arthralgia [Unknown]
  - Intervertebral disc degeneration [Unknown]
  - Limb discomfort [Unknown]
  - Joint swelling [Unknown]
  - Incision site oedema [Unknown]
  - Muscle spasms [Unknown]
  - Back pain [Unknown]
  - Pain in extremity [Unknown]
  - Limb discomfort [Unknown]
  - Back pain [Unknown]
